FAERS Safety Report 16972173 (Version 5)
Quarter: 2020Q2

REPORT INFORMATION
  Report Type: Report from Study
  Country: US (occurrence: US)
  Receive Date: 20191029
  Receipt Date: 20200630
  Transmission Date: 20200713
  Serious: Yes (Hospitalization)
  Sender: FDA-Public Use
  Company Number: US-ACTELION-A-NJ2019-196472

PATIENT
  Sex: Female
  Weight: 95.24 kg

DRUGS (4)
  1. ADEMPAS [Concomitant]
     Active Substance: RIOCIGUAT
  2. OPSUMIT [Suspect]
     Active Substance: MACITENTAN
     Indication: PULMONARY ARTERIAL HYPERTENSION
     Dosage: 10 MG, QD
     Route: 048
  3. ELIQUIS [Concomitant]
     Active Substance: APIXABAN
  4. ORENITRAM [Suspect]
     Active Substance: TREPROSTINIL
     Indication: PRODUCT USED FOR UNKNOWN INDICATION
     Dosage: UNK
     Route: 065

REACTIONS (12)
  - Unevaluable event [Unknown]
  - Abdominal pain upper [Unknown]
  - Sinus headache [Unknown]
  - Pain in extremity [Unknown]
  - Overdose [Unknown]
  - Cardiac disorder [Unknown]
  - Abdominal discomfort [Unknown]
  - Swelling [Unknown]
  - Peripheral swelling [Recovering/Resolving]
  - Musculoskeletal pain [Unknown]
  - Dyspnoea [Unknown]
  - Arthralgia [Unknown]
